FAERS Safety Report 18087106 (Version 2)
Quarter: 2020Q3

REPORT INFORMATION
  Report Type: Spontaneous
  Country: JP (occurrence: JP)
  Receive Date: 20200729
  Receipt Date: 20200812
  Transmission Date: 20201103
  Serious: Yes (Other)
  Sender: FDA-Public Use
  Company Number: JP-ACTELION-A-CH2020-207022

PATIENT
  Age: 11 Year
  Sex: Male

DRUGS (2)
  1. OPSUMIT [Suspect]
     Active Substance: MACITENTAN
     Indication: HYPOPLASTIC LEFT HEART SYNDROME
     Dosage: 5 MG, QD
     Route: 048
     Dates: start: 20160208, end: 20200713
  2. ADCIRCA [Suspect]
     Active Substance: TADALAFIL
     Indication: PRODUCT USED FOR UNKNOWN INDICATION
     Dosage: UNK
     Route: 048
     Dates: start: 201205

REACTIONS (4)
  - Platelet count decreased [Unknown]
  - Nasopharyngitis [Unknown]
  - Haemoglobin decreased [Unknown]
  - White blood cell count decreased [Unknown]
